FAERS Safety Report 21832180 (Version 1)
Quarter: 2023Q1

REPORT INFORMATION
  Report Type: Spontaneous
  Country: US (occurrence: US)
  Receive Date: 20230106
  Receipt Date: 20230106
  Transmission Date: 20230417
  Serious: No
  Sender: FDA-Public Use
  Company Number: US-INCYTE CORPORATION-2022IN012873

PATIENT

DRUGS (2)
  1. JAKAFI [Suspect]
     Active Substance: RUXOLITINIB
     Indication: Myeloproliferative neoplasm
     Dosage: 15 MILLIGRAM, TWICE DAILY
     Route: 048
  2. JAKAFI [Suspect]
     Active Substance: RUXOLITINIB
     Dosage: 20 MILLIGRAM, TWICE DAILY
     Route: 048

REACTIONS (3)
  - Lower respiratory tract infection [Not Recovered/Not Resolved]
  - Off label use [Unknown]
  - Drug effective for unapproved indication [Unknown]
